FAERS Safety Report 22177960 (Version 2)
Quarter: 2023Q2

REPORT INFORMATION
  Report Type: Spontaneous
  Country: BR (occurrence: None)
  Receive Date: 20230405
  Receipt Date: 20230421
  Transmission Date: 20230722
  Serious: Yes (Other)
  Sender: FDA-Public Use
  Company Number: 2023A076651

PATIENT
  Sex: Female
  Weight: 61 kg

DRUGS (1)
  1. DAPAGLIFLOZIN [Suspect]
     Active Substance: DAPAGLIFLOZIN
     Indication: Blood glucose abnormal
     Route: 048

REACTIONS (5)
  - Pruritus [Recovered/Resolved]
  - Genital erythema [Recovered/Resolved]
  - Erythema [Recovered/Resolved]
  - Pruritus genital [Recovered/Resolved]
  - Hypersensitivity [Unknown]
